FAERS Safety Report 17260803 (Version 1)
Quarter: 2020Q1

REPORT INFORMATION
  Report Type: Spontaneous
  Country: US (occurrence: US)
  Receive Date: 20200113
  Receipt Date: 20200113
  Transmission Date: 20200409
  Serious: Yes (Other)
  Sender: FDA-Public Use
  Company Number: US-AUROBINDO-AUR-APL-2020-002529

PATIENT
  Age: 30 Year
  Sex: Female

DRUGS (1)
  1. QUETIAPINE. [Suspect]
     Active Substance: QUETIAPINE
     Indication: SCHIZOPHRENIA
     Dosage: 800 MILLIGRAM, DAILY
     Route: 065

REACTIONS (3)
  - Weight increased [Unknown]
  - Glucose tolerance impaired [Unknown]
  - Cardiometabolic syndrome [Unknown]
